FAERS Safety Report 7964479-0 (Version None)
Quarter: 2011Q4

REPORT INFORMATION
  Report Type: 
  Country: None (occurrence: None)
  Receive Date: 20111208
  Receipt Date: 20111202
  Transmission Date: 20120403
  Serious: Yes (Other)
  Sender: FDA-Public Use
  Company Number: US-SANOFI-AVENTIS-2011SA079569

PATIENT
  Sex: Male

DRUGS (2)
  1. XANAX [Suspect]
  2. AMBIEN [Suspect]

REACTIONS (2)
  - SOMNAMBULISM [None]
  - ROAD TRAFFIC ACCIDENT [None]
